FAERS Safety Report 19150739 (Version 2)
Quarter: 2021Q2

REPORT INFORMATION
  Report Type: Spontaneous
  Country: JP (occurrence: JP)
  Receive Date: 20210419
  Receipt Date: 20210426
  Transmission Date: 20210717
  Serious: Yes (Hospitalization)
  Sender: FDA-Public Use
  Company Number: JP-JNJFOC-20210434881

PATIENT
  Age: 8 Decade

DRUGS (1)
  1. DUROTEP [Suspect]
     Active Substance: FENTANYL
     Indication: PAIN
     Dosage: DOSE UNKNOWN
     Route: 062

REACTIONS (1)
  - Pneumonia [Unknown]
